FAERS Safety Report 4643551-7 (Version None)
Quarter: 2005Q2

REPORT INFORMATION
  Report Type: 
  Country: None (occurrence: None)
  Receive Date: 20050425
  Receipt Date: 20050413
  Transmission Date: 20051028
  Serious: Yes (Other)
  Sender: FDA-Public Use
  Company Number: US-JNJFOC-20050204670

PATIENT
  Sex: Female

DRUGS (12)
  1. REMICADE [Suspect]
     Route: 042
  2. REMICADE [Suspect]
     Route: 042
  3. REMICADE [Suspect]
     Route: 042
  4. REMICADE [Suspect]
     Dosage: THIRD INFUSION.
     Route: 042
  5. REMICADE [Suspect]
     Indication: CROHN'S DISEASE
     Route: 042
  6. COLAZOL [Suspect]
     Indication: DRUG USE FOR UNKNOWN INDICATION
  7. FLAGYL [Suspect]
     Indication: DRUG USE FOR UNKNOWN INDICATION
  8. 6MP [Suspect]
     Indication: DRUG USE FOR UNKNOWN INDICATION
  9. ASACOL [Concomitant]
     Dosage: 4 TABLETS
  10. ENTOCORT [Concomitant]
     Dosage: 3 TABLETS
  11. PROTONIX [Concomitant]
  12. FLAGYL [Concomitant]

REACTIONS (12)
  - COUGH [None]
  - DIARRHOEA [None]
  - DRUG INEFFECTIVE [None]
  - GASTROOESOPHAGEAL REFLUX DISEASE [None]
  - HAEMATOCHEZIA [None]
  - INSOMNIA [None]
  - NAUSEA [None]
  - OPTIC NEURITIS [None]
  - ORAL CANDIDIASIS [None]
  - OSTEOPENIA [None]
  - RHINORRHOEA [None]
  - VOMITING [None]
